FAERS Safety Report 25888704 (Version 2)
Quarter: 2025Q4

REPORT INFORMATION
  Report Type: Spontaneous
  Country: IN (occurrence: IN)
  Receive Date: 20251007
  Receipt Date: 20251104
  Transmission Date: 20260117
  Serious: Yes (Other)
  Sender: CIPLA
  Company Number: IN-CIPLA LTD.-2025IN12065

PATIENT

DRUGS (3)
  1. ALBENDAZOLE [Suspect]
     Active Substance: ALBENDAZOLE
     Indication: Filariasis
     Dosage: 400 MILLIGRAM, QD  (SINGLE DOSE CO-ADMINISTRATION ONLY ONCE)
     Route: 048
  2. IVERMECTIN [Suspect]
     Active Substance: IVERMECTIN
     Indication: Filariasis
     Dosage: 12 MILLIGRAM, QD (SINGLE DOSE CO-ADMINISTRATION ONLY ONCE)
     Route: 048
  3. DIETHYLCARBAMAZINE [Suspect]
     Active Substance: DIETHYLCARBAMAZINE
     Indication: Filariasis
     Dosage: 300 MILLIGRAM, QD (SINGLE DOSE CO-ADMINISTRATION ONLY ONCE)
     Route: 048

REACTIONS (1)
  - Lymphangitis [Recovered/Resolved]
